FAERS Safety Report 14701689 (Version 1)
Quarter: 2018Q1

REPORT INFORMATION
  Report Type: Spontaneous
  Country: US (occurrence: US)
  Receive Date: 20180331
  Receipt Date: 20180331
  Transmission Date: 20180509
  Serious: No
  Sender: FDA-Public Use
  Company Number: US-ASTRAZENECA-2018SE28548

PATIENT
  Sex: Female

DRUGS (1)
  1. FASENRA [Suspect]
     Active Substance: BENRALIZUMAB
     Indication: ASTHMA
     Dosage: 1 DOSE OF 30 MILLGRAMS. PATIENT^S RASH RESOLVED AND WAS THEN GIVEN FASENRA AT A SMALLER DOSE 6 M...
     Route: 058

REACTIONS (1)
  - Rash pruritic [Recovered/Resolved]
